FAERS Safety Report 7313255-0 (Version None)
Quarter: 2011Q1

REPORT INFORMATION
  Report Type: 
  Country: None (occurrence: None)
  Receive Date: 20110215
  Receipt Date: 20110215
  Transmission Date: 20110831
  Serious: Yes (Hospitalization)
  Sender: FDA-Public Use
  Company Number: None

PATIENT
  Age: 65 Year
  Sex: Male
  Weight: 79 kg

DRUGS (2)
  1. SULFAMETHOXAZOLE AND TRIMETHOPRIM [Suspect]
     Indication: SINUSITIS
     Dosage: 1 TAB BID PO
     Route: 048
     Dates: start: 20110201, end: 20110212
  2. LISINOPRIL AND HYDROCHLOROTHIAZIDE [Suspect]
     Indication: HYPERTENSION
     Dosage: 1 TAB EVERY DAY PO
     Route: 048
     Dates: start: 20100708, end: 20110212

REACTIONS (2)
  - RENAL TUBULAR NECROSIS [None]
  - RENAL FAILURE ACUTE [None]
